FAERS Safety Report 23761680 (Version 2)
Quarter: 2024Q3

REPORT INFORMATION
  Report Type: Report from Study
  Country: RU (occurrence: RU)
  Receive Date: 20240419
  Receipt Date: 20240806
  Transmission Date: 20241016
  Serious: Yes (Hospitalization, Other)
  Sender: NOVARTIS
  Company Number: RU-002147023-NVSC2024RU078418

PATIENT
  Age: 65 Year
  Sex: Female

DRUGS (9)
  1. RIBOCICLIB [Suspect]
     Active Substance: RIBOCICLIB
     Indication: Breast cancer stage III
     Dosage: 600 MG, DAYS 1-21 OF A 28-DAY CYCLE
     Route: 048
  2. RIBOCICLIB [Suspect]
     Active Substance: RIBOCICLIB
     Indication: Metastases to bone
     Dosage: 400 MG, 21 DAYS, 28 DAY CYCLE
     Route: 065
     Dates: start: 20240313, end: 20240402
  3. ZOLEDRONIC ACID [Suspect]
     Active Substance: ZOLEDRONIC ACID
     Indication: Breast cancer stage III
     Dosage: 4 MG, 1 DAY OF 28 DAYS CYCLE IV INFUSION
     Route: 042
     Dates: start: 20240313
  4. ZOLEDRONIC ACID [Suspect]
     Active Substance: ZOLEDRONIC ACID
     Indication: Metastases to bone
  5. ANASTROZOLE [Concomitant]
     Active Substance: ANASTROZOLE
     Indication: Product used for unknown indication
     Dosage: 1 MG, QD, 28 DAY CYCLE, 9 TH CYCLE
     Route: 048
     Dates: start: 20240313, end: 20240409
  6. BISOPROLOL [Concomitant]
     Active Substance: BISOPROLOL\BISOPROLOL FUMARATE
     Indication: Product used for unknown indication
     Dosage: UNK
     Route: 065
  7. LOSARTAN [Concomitant]
     Active Substance: LOSARTAN
     Indication: Product used for unknown indication
     Dosage: UNK
     Route: 065
  8. CARDIOMAGNYL [Concomitant]
     Active Substance: ASPIRIN\MAGNESIUM HYDROXIDE
     Indication: Product used for unknown indication
     Dosage: UNK
     Route: 065
  9. METFORMIN [Concomitant]
     Active Substance: METFORMIN HYDROCHLORIDE
     Indication: Type 2 diabetes mellitus
     Dosage: 850 MG, QD
     Route: 065
     Dates: start: 2018

REACTIONS (4)
  - Leukopenia [Unknown]
  - Neutropenia [Unknown]
  - Asthenia [Recovering/Resolving]
  - Musculoskeletal discomfort [Recovering/Resolving]
